FAERS Safety Report 9679360 (Version 1)
Quarter: 2013Q4

REPORT INFORMATION
  Report Type: Spontaneous
  Country: US (occurrence: US)
  Receive Date: 20131109
  Receipt Date: 20131109
  Transmission Date: 20140711
  Serious: No
  Sender: FDA-Public Use
  Company Number: US-SANOFI-AVENTIS-2013SA023702

PATIENT
  Age: 59 Year
  Sex: Female

DRUGS (1)
  1. ALLEGRA-D, 24 HR [Suspect]
     Dosage: TAKEN FROM- IN LATE SUMMER (AUG-2012 OR SEP-2012).
     Route: 048

REACTIONS (3)
  - Tachyphrenia [Unknown]
  - Insomnia [Unknown]
  - Feeling jittery [Unknown]
